FAERS Safety Report 13541315 (Version 1)
Quarter: 2017Q2

REPORT INFORMATION
  Report Type: Spontaneous
  Country: US (occurrence: US)
  Receive Date: 20170512
  Receipt Date: 20170512
  Transmission Date: 20170830
  Serious: Yes (Other)
  Sender: FDA-Public Use
  Company Number: US-ASTELLAS-2017US016734

PATIENT
  Age: 20 Year
  Sex: Female

DRUGS (1)
  1. MYCAMINE [Suspect]
     Active Substance: MICAFUNGIN SODIUM
     Indication: PERITONITIS
     Route: 042

REACTIONS (6)
  - Cardiac arrest [Unknown]
  - Unresponsive to stimuli [Unknown]
  - Off label use [Unknown]
  - Cyanosis [Unknown]
  - Hypoxia [Unknown]
  - Brain injury [Unknown]
